FAERS Safety Report 16931384 (Version 1)
Quarter: 2019Q4

REPORT INFORMATION
  Report Type: Spontaneous
  Country: GB (occurrence: GB)
  Receive Date: 20191017
  Receipt Date: 20191017
  Transmission Date: 20200122
  Serious: Yes (Death)
  Sender: FDA-Public Use
  Company Number: GB-MYLANLABS-2019M1098044

PATIENT
  Age: 24 Year
  Sex: Male

DRUGS (4)
  1. ZAPONEX [Suspect]
     Active Substance: CLOZAPINE
     Dosage: 100 MILLIGRAM, QD (TAKEN AT NIGHT)
     Route: 048
     Dates: start: 20180509, end: 20190108
  2. QUETIAPINE. [Suspect]
     Active Substance: QUETIAPINE
     Indication: PRODUCT USED FOR UNKNOWN INDICATION
     Dosage: UNK
     Dates: start: 20190107, end: 20190107
  3. ZAPONEX [Suspect]
     Active Substance: CLOZAPINE
     Indication: SCHIZOPHRENIA
     Dosage: 1000 MILLIGRAM (TAKEN HOPING TO END HIS LIFE)
     Route: 048
     Dates: start: 20190107, end: 20190107
  4. HYOSCINE [Concomitant]
     Active Substance: SCOPOLAMINE
     Dosage: 600 MICROGRAM, QD

REACTIONS (4)
  - Toxicity to various agents [Fatal]
  - Postmortem blood drug level increased [Fatal]
  - Intentional overdose [Fatal]
  - Completed suicide [Fatal]

NARRATIVE: CASE EVENT DATE: 20190107
